FAERS Safety Report 5564511-8 (Version None)
Quarter: 2007Q4

REPORT INFORMATION
  Report Type: 
  Country: None (occurrence: None)
  Receive Date: 20071212
  Receipt Date: 20071129
  Transmission Date: 20080405
  Serious: Yes (Hospitalization)
  Sender: FDA-Public Use
  Company Number: 230742J07USA

PATIENT
  Age: 52 Year
  Sex: Female
  Weight: 91.173 kg

DRUGS (12)
  1. REBIF [Suspect]
     Indication: MULTIPLE SCLEROSIS
     Dosage: 4 MCG, 3 IN 1 WEEKS, SUBCUTANEOUS
     Route: 058
     Dates: start: 20051020
  2. HYZAAR [Concomitant]
  3. SYNTHROID [Concomitant]
  4. CALCITRIOL [Concomitant]
  5. PREVACID [Concomitant]
  6. JANUMET (ALL OTHER THERAPEUTIC PRODUCTS) [Concomitant]
  7. NASONEX [Concomitant]
  8. ZOLOFT [Concomitant]
  9. ALPHAGAN [Concomitant]
  10. XALATAN [Concomitant]
  11. NORVASC [Concomitant]
  12. TOPROL-XL [Concomitant]

REACTIONS (3)
  - MENINGITIS VIRAL [None]
  - MULTIPLE SCLEROSIS [None]
  - NASAL SEPTUM DEVIATION [None]
